FAERS Safety Report 21093247 (Version 3)
Quarter: 2022Q3

REPORT INFORMATION
  Report Type: Spontaneous
  Country: IE (occurrence: IE)
  Receive Date: 20220718
  Receipt Date: 20220930
  Transmission Date: 20221027
  Serious: Yes (Hospitalization, Other)
  Sender: FDA-Public Use
  Company Number: IE-NOVARTISPH-NVSC2022IE160631

PATIENT
  Age: 3 Year
  Sex: Female

DRUGS (4)
  1. EVEROLIMUS [Suspect]
     Active Substance: EVEROLIMUS
     Indication: Tuberous sclerosis complex
     Dosage: 10 MG
     Route: 048
     Dates: start: 202104, end: 20220221
  2. LEVETIRACETAM [Concomitant]
     Active Substance: LEVETIRACETAM
     Indication: Seizure
     Dosage: 375 MG, BID, (SUSPENSION)
     Route: 048
  3. ZONISAMIDE [Concomitant]
     Active Substance: ZONISAMIDE
     Indication: Seizure
     Dosage: 75 MG, BID, (SUSPENSION)
     Route: 048
  4. NITRAZEPAM [Concomitant]
     Active Substance: NITRAZEPAM
     Indication: Seizure
     Dosage: 7.5 MG, BID (SUSPENSION)
     Route: 048

REACTIONS (7)
  - Oesophageal ulcer [Recovered/Resolved]
  - Herpes virus infection [Recovered/Resolved]
  - Herpes simplex [Recovered/Resolved]
  - Escherichia sepsis [Recovered/Resolved]
  - Respiratory disorder [Unknown]
  - Immunodeficiency [Unknown]
  - Skin disorder [Unknown]

NARRATIVE: CASE EVENT DATE: 20211201
